FAERS Safety Report 16679152 (Version 3)
Quarter: 2019Q3

REPORT INFORMATION
  Report Type: Spontaneous
  Country: US (occurrence: US)
  Receive Date: 20190807
  Receipt Date: 20190924
  Transmission Date: 20191004
  Serious: Yes (Other)
  Sender: FDA-Public Use
  Company Number: US-BAYER-2019-145838

PATIENT
  Age: 20 Year
  Sex: Female

DRUGS (9)
  1. MIRENA [Suspect]
     Active Substance: LEVONORGESTREL
     Indication: CONTRACEPTION
     Dosage: 20 MCG/24HR, CONT
     Route: 015
     Dates: start: 20190718, end: 20190805
  2. PROPRANOLOL [Concomitant]
     Active Substance: PROPRANOLOL HYDROCHLORIDE
     Dosage: 20 MG, BID
     Route: 048
  3. PRISTIQ EXTENDED-RELEASE [Concomitant]
     Active Substance: DESVENLAFAXINE SUCCINATE
  4. MIRENA [Suspect]
     Active Substance: LEVONORGESTREL
     Indication: CONTRACEPTION
     Dosage: UNK
  5. ANAPROX [Concomitant]
     Active Substance: NAPROXEN SODIUM
     Dosage: UNK, BID
     Route: 048
  6. MIRENA [Suspect]
     Active Substance: LEVONORGESTREL
     Indication: GENITAL HAEMORRHAGE
  7. LATUDA [Concomitant]
     Active Substance: LURASIDONE HYDROCHLORIDE
  8. MIRENA [Suspect]
     Active Substance: LEVONORGESTREL
     Indication: GENITAL HAEMORRHAGE
  9. LITHIUM. [Concomitant]
     Active Substance: LITHIUM

REACTIONS (6)
  - Device expulsion [Recovered/Resolved]
  - Medical device pain [None]
  - Medical device discomfort [None]
  - Uterine spasm [None]
  - Genital haemorrhage [None]
  - Abdominal pain lower [None]

NARRATIVE: CASE EVENT DATE: 20190801
